FAERS Safety Report 20935631 (Version 4)
Quarter: 2022Q4

REPORT INFORMATION
  Report Type: Spontaneous
  Country: JP (occurrence: JP)
  Receive Date: 20220609
  Receipt Date: 20221019
  Transmission Date: 20230113
  Serious: Yes (Life-Threatening, Hospitalization, Disabling, Other)
  Sender: FDA-Public Use
  Company Number: JP-BRISTOL-MYERS SQUIBB COMPANY-BMS-2022-018406

PATIENT
  Age: 61 Year
  Sex: Female
  Weight: 49.7 kg

DRUGS (10)
  1. YERVOY [Suspect]
     Active Substance: IPILIMUMAB
     Indication: Non-small cell lung cancer recurrent
     Dosage: 48 MG
     Route: 041
     Dates: start: 20211014, end: 20211126
  2. YERVOY [Suspect]
     Active Substance: IPILIMUMAB
  3. OPDIVO [Suspect]
     Active Substance: NIVOLUMAB
     Indication: Non-small cell lung cancer recurrent
     Route: 041
     Dates: start: 20211014, end: 20211217
  4. CARBOPLATIN [Suspect]
     Active Substance: CARBOPLATIN
     Indication: Non-small cell lung cancer recurrent
     Route: 041
     Dates: start: 20211014, end: 20211105
  5. PACLITAXEL [Suspect]
     Active Substance: PACLITAXEL
     Indication: Non-small cell lung cancer recurrent
     Route: 065
     Dates: start: 20211014, end: 20211105
  6. FAMOTIDINE [Concomitant]
     Active Substance: FAMOTIDINE
     Indication: Prophylaxis
     Dosage: 20 MG
     Route: 041
     Dates: start: 20211014, end: 20211105
  7. FAMOTIDINE [Concomitant]
     Active Substance: FAMOTIDINE
  8. POLARAMINE [Concomitant]
     Active Substance: DEXCHLORPHENIRAMINE MALEATE
     Indication: Prophylaxis
     Dosage: 5 MG
     Route: 041
     Dates: start: 20211014, end: 20211105
  9. ALOXI [Concomitant]
     Active Substance: PALONOSETRON HYDROCHLORIDE
     Indication: Prophylaxis
     Dosage: 0.75 MG
     Route: 041
     Dates: start: 20211014, end: 20211105
  10. DECADRON [Concomitant]
     Active Substance: DEXAMETHASONE
     Indication: Prophylaxis
     Dates: start: 20211014, end: 20211105

REACTIONS (12)
  - Pancreatic failure [Recovering/Resolving]
  - Cholangitis [Recovering/Resolving]
  - Cytomegalovirus enterocolitis [Recovered/Resolved]
  - Hepatic failure [Recovering/Resolving]
  - Skin disorder [Recovering/Resolving]
  - Immune-mediated enterocolitis [Recovered/Resolved]
  - Hyperthyroidism [Recovered/Resolved]
  - Eosinophilia [Recovered/Resolved]
  - Hepatic function abnormal [Recovering/Resolving]
  - Enterocolitis infectious [Recovered/Resolved]
  - Pancreatitis [Recovering/Resolving]
  - Pancreatic enzymes increased [Recovering/Resolving]

NARRATIVE: CASE EVENT DATE: 20211019
